FAERS Safety Report 9608714 (Version 3)
Quarter: 2014Q1

REPORT INFORMATION
  Report Type: Report from Study
  Country: KR (occurrence: KR)
  Receive Date: 20131009
  Receipt Date: 20140317
  Transmission Date: 20141002
  Serious: Yes (Hospitalization)
  Sender: FDA-Public Use
  Company Number: KR-JNJFOC-20131000898

PATIENT
  Age: 10 Year
  Sex: Female
  Weight: 37.6 kg

DRUGS (15)
  1. REMICADE [Suspect]
     Indication: CROHN^S DISEASE
     Route: 042
     Dates: start: 20131101, end: 20131101
  2. REMICADE [Suspect]
     Indication: CROHN^S DISEASE
     Dosage: 3RD ADMINISTRATION
     Route: 042
     Dates: start: 20130906, end: 20130906
  3. REMICADE [Suspect]
     Indication: CROHN^S DISEASE
     Route: 042
     Dates: start: 20130812, end: 20130812
  4. REMICADE [Suspect]
     Indication: CROHN^S DISEASE
     Route: 042
     Dates: start: 20130729, end: 20130729
  5. NISOLONE [Concomitant]
     Indication: CROHN^S DISEASE
     Route: 048
     Dates: start: 20130617, end: 20130705
  6. NISOLONE [Concomitant]
     Indication: CROHN^S DISEASE
     Route: 048
     Dates: start: 20130710, end: 20130714
  7. NISOLONE [Concomitant]
     Indication: CROHN^S DISEASE
     Route: 048
     Dates: start: 20130715, end: 20130718
  8. NISOLONE [Concomitant]
     Indication: CROHN^S DISEASE
     Route: 048
     Dates: start: 20130719, end: 20130722
  9. NISOLONE [Concomitant]
     Indication: CROHN^S DISEASE
     Route: 048
     Dates: start: 20130723, end: 20130726
  10. NISOLONE [Concomitant]
     Indication: CROHN^S DISEASE
     Route: 048
     Dates: start: 20130603, end: 20130616
  11. PENTASA [Concomitant]
     Indication: CROHN^S DISEASE
     Route: 048
     Dates: start: 20130611, end: 20130705
  12. PENTASA [Concomitant]
     Indication: CROHN^S DISEASE
     Route: 048
     Dates: start: 20130710
  13. TRIZELE [Concomitant]
     Indication: CROHN^S DISEASE
     Route: 050
     Dates: start: 20130706, end: 20130731
  14. AZATHIOPRINE [Concomitant]
     Indication: CROHN^S DISEASE
     Route: 048
     Dates: start: 20130710, end: 20130728
  15. AZATHIOPRINE [Concomitant]
     Indication: CROHN^S DISEASE
     Route: 048
     Dates: start: 20130729, end: 20130731

REACTIONS (1)
  - Large intestinal obstruction [Recovered/Resolved]
